FAERS Safety Report 5120356-4 (Version None)
Quarter: 2006Q4

REPORT INFORMATION
  Report Type: 
  Country: None (occurrence: None)
  Receive Date: 20061002
  Receipt Date: 20061002
  Transmission Date: 20070319
  Serious: Yes (Hospitalization)
  Sender: FDA-Public Use
  Company Number: None

PATIENT
  Age: 52 Year
  Sex: Male
  Weight: 74 kg

DRUGS (1)
  1. ENOXAPARIN [Suspect]
     Indication: PORTAL VEIN THROMBOSIS
     Dosage: 80 MG Q 12H SQ
     Route: 058
     Dates: start: 20051101, end: 20060101

REACTIONS (2)
  - GASTROINTESTINAL HAEMORRHAGE [None]
  - SUBDURAL HAEMATOMA [None]
